FAERS Safety Report 10696922 (Version 3)
Quarter: 2015Q2

REPORT INFORMATION
  Report Type: Spontaneous
  Country: FR (occurrence: FR)
  Receive Date: 20150108
  Receipt Date: 20150522
  Transmission Date: 20150821
  Serious: Yes (Life-Threatening)
  Sender: FDA-Public Use
  Company Number: FR-MERCK-1501FRA000668

PATIENT
  Age: 32 Year
  Sex: Male

DRUGS (8)
  1. INEXIUM (ESOMEPRAZOLE SODIUM) [Suspect]
     Active Substance: ESOMEPRAZOLE
     Dosage: TOTAL DAILY DOSE :1 DF, QD
     Route: 048
  2. NOXAFIL [Suspect]
     Active Substance: POSACONAZOLE
     Dosage: 3 DF, TID, STRENGTH REPORTED AS 40 MG/ML
     Route: 048
     Dates: start: 20141112, end: 20141120
  3. OXYNORM [Suspect]
     Active Substance: OXYCODONE HYDROCHLORIDE
     Dosage: TOTAL DAILY DOSE 3 DF, UNK
     Route: 048
     Dates: end: 201411
  4. ZELITREX [Suspect]
     Active Substance: VALACYCLOVIR HYDROCHLORIDE
     Dosage: 1 DF, BID, TOTAL DAILY DOSE : 2 DF
     Route: 048
  5. DUROGESIC [Suspect]
     Active Substance: FENTANYL
     Dosage: TOTAL DAILY DOSE 1 DF, EVERY 72 HOURS
     Route: 062
  6. AMOXICILLIN. [Suspect]
     Active Substance: AMOXICILLIN
     Dosage: BID, TOTAL DAILY DOSE: 2 G
     Route: 048
     Dates: end: 201411
  7. TRANXENE T-TAB [Suspect]
     Active Substance: CLORAZEPATE DIPOTASSIUM
     Dosage: 3 DF, UNK
     Route: 048
     Dates: end: 201411
  8. CORTANCYL [Concomitant]
     Active Substance: PREDNISONE
     Dosage: 10 MG, QD
     Route: 048
     Dates: end: 201411

REACTIONS (1)
  - Interstitial lung disease [Recovering/Resolving]

NARRATIVE: CASE EVENT DATE: 201411
